FAERS Safety Report 8435009 (Version 2)
Quarter: 2013Q3

REPORT INFORMATION
  Report Type: Report from Study
  Country: US (occurrence: US)
  Receive Date: 20120301
  Receipt Date: 20130819
  Transmission Date: 20140515
  Serious: Yes (Other)
  Sender: FDA-Public Use
  Company Number: US-ABBOTT-12P-163-0907645-00

PATIENT
  Age: 62 Year
  Sex: Female

DRUGS (21)
  1. HUMIRA 40 MG/0.8 ML PEN [Suspect]
     Indication: CROHN^S DISEASE
     Dates: start: 201106, end: 201112
  2. HUMIRA 40 MG/0.8 ML PEN [Suspect]
     Dates: start: 201112, end: 201201
  3. HUMIRA 40 MG/0.8 ML PEN [Suspect]
     Dates: start: 201202
  4. PLAQUENIL [Suspect]
     Indication: SYSTEMIC LUPUS ERYTHEMATOSUS
     Dosage: 2 TABS DAILY
     Dates: start: 201112
  5. PLAQUENIL [Suspect]
     Dates: start: 20120206
  6. LORAZEPAM [Concomitant]
     Indication: ANXIETY
  7. LORAZEPAM [Concomitant]
     Indication: DEPRESSION
  8. CELEBREX [Concomitant]
     Indication: ARTHRITIS
  9. PROTONIX [Concomitant]
     Indication: GASTROOESOPHAGEAL REFLUX DISEASE
     Route: 048
  10. LEXAPRO [Concomitant]
     Indication: ANXIETY
  11. LEXAPRO [Concomitant]
     Indication: DEPRESSION
  12. VITAMIN D [Concomitant]
     Indication: PRODUCT USED FOR UNKNOWN INDICATION
  13. FEMHRT [Concomitant]
     Indication: OESTROGEN REPLACEMENT THERAPY
     Dosage: 1/5 DAILY
  14. COLESTIPOL [Concomitant]
     Indication: DIARRHOEA
     Dosage: UP TO 3 TIMES DAILY, PRN
  15. OSCAL D3 [Concomitant]
     Indication: PRODUCT USED FOR UNKNOWN INDICATION
  16. NORCO [Concomitant]
     Indication: PAIN
     Dosage: 5/325, UP TO 3 TIMES DAILY, PRN
  17. CENTRUM SILVER [Concomitant]
     Indication: PRODUCT USED FOR UNKNOWN INDICATION
     Dosage: DAILY
  18. VITAMIN B12 [Concomitant]
     Indication: PRODUCT USED FOR UNKNOWN INDICATION
  19. ZOLPIDEM TARTRATE ER [Concomitant]
     Indication: INSOMNIA
     Dosage: 1 TAB AT NIGHT
  20. SOMA [Concomitant]
     Indication: ARTHRITIS
     Dosage: AT BEDTIME
  21. LOMOTIL [Concomitant]
     Indication: DIARRHOEA

REACTIONS (15)
  - Systemic lupus erythematosus [Not Recovered/Not Resolved]
  - Myelitis [Not Recovered/Not Resolved]
  - Neurological symptom [Not Recovered/Not Resolved]
  - Rash [Recovering/Resolving]
  - Streptococcal infection [Recovering/Resolving]
  - Condition aggravated [Unknown]
  - Constipation [Recovered/Resolved]
  - Diarrhoea [Not Recovered/Not Resolved]
  - Crohn^s disease [Not Recovered/Not Resolved]
  - Hypophagia [Not Recovered/Not Resolved]
  - Decreased activity [Not Recovered/Not Resolved]
  - Activities of daily living impaired [Not Recovered/Not Resolved]
  - Nasopharyngitis [Recovering/Resolving]
  - Abdominal pain [Not Recovered/Not Resolved]
  - Chronic sinusitis [Not Recovered/Not Resolved]
